FAERS Safety Report 7595330-9 (Version None)
Quarter: 2011Q3

REPORT INFORMATION
  Report Type: 
  Country: None (occurrence: None)
  Receive Date: 20110707
  Receipt Date: 20110630
  Transmission Date: 20111222
  Serious: Yes (Other)
  Sender: FDA-Public Use
  Company Number: US-ABBOTT-11P-163-0708775-00

PATIENT
  Sex: Female

DRUGS (4)
  1. LYRICA [Concomitant]
     Indication: FIBROMYALGIA
  2. HUMIRA [Suspect]
     Indication: PSORIATIC ARTHROPATHY
     Dates: start: 20100601
  3. METHOTREXATE [Suspect]
     Indication: PSORIATIC ARTHROPATHY
  4. PREDNISONE [Concomitant]
     Indication: PSORIATIC ARTHROPATHY

REACTIONS (9)
  - DRY SKIN [None]
  - SCAR [None]
  - MUSCULAR WEAKNESS [None]
  - SKIN EXFOLIATION [None]
  - HYPOAESTHESIA [None]
  - OEDEMA PERIPHERAL [None]
  - RASH VESICULAR [None]
  - PSORIATIC ARTHROPATHY [None]
  - HEPATIC ENZYME INCREASED [None]
